FAERS Safety Report 20668111 (Version 1)
Quarter: 2022Q2

REPORT INFORMATION
  Report Type: Report from Study
  Country: ES (occurrence: ES)
  Receive Date: 20220404
  Receipt Date: 20220404
  Transmission Date: 20220721
  Serious: Yes (Hospitalization, Other)
  Sender: FDA-Public Use
  Company Number: None

PATIENT
  Age: 87 Year
  Sex: Male

DRUGS (15)
  1. FLUOXETINE [Suspect]
     Active Substance: FLUOXETINE HYDROCHLORIDE
     Indication: Product used for unknown indication
     Dosage: 20 MG, QD
     Route: 065
  2. APIXABAN [Suspect]
     Active Substance: APIXABAN
     Indication: Product used for unknown indication
     Dosage: 2.5 MG, BID
     Route: 065
  3. MIRABEGRON [Suspect]
     Active Substance: MIRABEGRON
     Indication: Product used for unknown indication
     Dosage: 1 DF, QD
     Route: 065
  4. FENTANYL [Suspect]
     Active Substance: FENTANYL
     Indication: Dyspnoea
     Dosage: UNK
     Route: 048
     Dates: start: 201801
  5. VILDAGLIPTIN [Suspect]
     Active Substance: VILDAGLIPTIN
     Indication: Type 2 diabetes mellitus
     Dosage: 1 DF, QD, ALSO TAKEN 50 MG (50 MG, Q12H)
     Route: 048
  6. IPRATROPIUM BROMIDE AND ALBUTEROL SULFATE [Suspect]
     Active Substance: ALBUTEROL SULFATE\IPRATROPIUM BROMIDE
     Indication: Product used for unknown indication
     Dosage: EVERY 6 HOURS, INHALATION SOLUTION, 4 DOSAGE FORM TAKEN
     Route: 045
  7. FUROSEMIDE [Suspect]
     Active Substance: FUROSEMIDE
     Indication: Product used for unknown indication
     Dosage: 1 DF, QD
     Route: 065
  8. LATANOPROST [Suspect]
     Active Substance: LATANOPROST
     Indication: Product used for unknown indication
     Dosage: 2 DRP, QD
     Route: 065
  9. QUETIAPINE [Suspect]
     Active Substance: QUETIAPINE
     Indication: Product used for unknown indication
     Dosage: 25 MG, TID
     Route: 065
  10. BUDESONIDE [Suspect]
     Active Substance: BUDESONIDE
     Indication: Product used for unknown indication
     Dosage: INHALATION POWDER, UNK, BID
     Route: 045
  11. IPRATROPIUM BROMIDE [Suspect]
     Active Substance: IPRATROPIUM BROMIDE
     Dosage: 4 DOSAGE FORM, QD (1 DF (UNITS UNSPECIFIED), Q6H)
     Route: 045
  12. QUETIAPINE FUMARATE [Concomitant]
     Active Substance: QUETIAPINE FUMARATE
     Dosage: 25 MG, TID (2-2-1)
  13. VILDAGLIPTIN [Concomitant]
     Active Substance: VILDAGLIPTIN
     Dosage: STRENGTH: 50 MG TABLETS, 50 MG, BID
  14. PULMICORT TURBUHALER [Concomitant]
     Active Substance: BUDESONIDE
     Indication: Product used for unknown indication
     Dosage: UNK, BID
     Route: 045
  15. FUROSEMIDE [Concomitant]
     Active Substance: FUROSEMIDE
     Indication: Product used for unknown indication
     Dosage: 40 MG, QD

REACTIONS (15)
  - Bronchiectasis [Unknown]
  - Blood pressure abnormal [Unknown]
  - Bone marrow oedema [Unknown]
  - Tachypnoea [Unknown]
  - Arrhythmia [Unknown]
  - Respiratory failure [Recovered/Resolved]
  - Haemoglobin abnormal [Unknown]
  - C-reactive protein abnormal [Unknown]
  - Peripheral venous disease [Unknown]
  - Heart rate abnormal [Unknown]
  - Dyspnoea [Recovered/Resolved]
  - Oedema peripheral [Unknown]
  - White blood cell count abnormal [Unknown]
  - Respiratory tract infection [Unknown]
  - Pneumonia [Unknown]
